FAERS Safety Report 12404157 (Version 1)
Quarter: 2016Q2

REPORT INFORMATION
  Report Type: Spontaneous
  Country: DK (occurrence: DK)
  Receive Date: 20160525
  Receipt Date: 20160525
  Transmission Date: 20160815
  Serious: Yes (Other)
  Sender: FDA-Public Use
  Company Number: DK-JNJFOC-20160516451

PATIENT
  Age: 25 Year
  Sex: Male

DRUGS (4)
  1. FENTANYL TRANSDERMAL SYSTEM [Suspect]
     Active Substance: FENTANYL
     Indication: NECK PAIN
     Route: 062
  2. CHLORZOXAZONE. [Suspect]
     Active Substance: CHLORZOXAZONE
     Indication: NECK PAIN
     Dosage: 250 DOSE
     Route: 065
  3. TRAMADOL. [Suspect]
     Active Substance: TRAMADOL
     Indication: NECK PAIN
     Dosage: 150-400 MG DAILY
     Route: 065
  4. MORPHINE [Suspect]
     Active Substance: MORPHINE
     Indication: NECK PAIN
     Dosage: 20-40 MG WITH AN ADDITIONAL DOSE OF 100 MG X 4 AS NECESSARY
     Route: 065

REACTIONS (8)
  - Muscle spasms [Recovering/Resolving]
  - Gait disturbance [Recovering/Resolving]
  - Secondary adrenocortical insufficiency [Recovering/Resolving]
  - Dizziness [Recovering/Resolving]
  - Nausea [Recovering/Resolving]
  - Spinal column injury [Recovering/Resolving]
  - Sensory disturbance [Recovering/Resolving]
  - Weight decreased [Recovering/Resolving]
